FAERS Safety Report 23518656 (Version 2)
Quarter: 2024Q1

REPORT INFORMATION
  Report Type: Spontaneous
  Country: JP (occurrence: JP)
  Receive Date: 20240213
  Receipt Date: 20240301
  Transmission Date: 20240410
  Serious: Yes (Other)
  Sender: FDA-Public Use
  Company Number: JP-PFIZER INC-PV202400018664

PATIENT
  Age: 50 Year
  Sex: Female
  Weight: 55 kg

DRUGS (8)
  1. PAXLOVID [Suspect]
     Active Substance: NIRMATRELVIR\RITONAVIR
     Indication: COVID-19 treatment
     Dosage: NIRMATRELVIR 300 MG]/[RITONAVIR 100 MG]; 2X/DAY
     Route: 048
     Dates: start: 20240201, end: 20240203
  2. CARBOCYSTEINE [Concomitant]
     Active Substance: CARBOCYSTEINE
     Dosage: 500 MG, 3X/DAY FOR 8 DAYS AFTER MEALS
     Route: 048
     Dates: start: 20240201
  3. REBAMIPIDE [Concomitant]
     Active Substance: REBAMIPIDE
     Dosage: 100 MG, 3X/DAY AFTER MEALS
     Route: 048
     Dates: start: 20240201
  4. TOKISHAKUYAKUSAN [ALISMA PLANTAGO-AQUATICA SUBSP. ORIENTALE TUBER;ANGE [Concomitant]
     Dosage: UNK
  5. ALINAMIN [FURSULTIAMINE HYDROCHLORIDE] [Concomitant]
     Dosage: UNK
  6. BIO-THREE [Concomitant]
     Active Substance: HERBALS
     Dosage: 3 DF, 2X/DAY
     Route: 048
  7. BETAMETHASONE [Concomitant]
     Active Substance: BETAMETHASONE\BETAMETHASONE DIPROPIONATE
     Dosage: 0.5 MG, 1X/DAY
     Route: 048
  8. CALONAL [Concomitant]
     Active Substance: ACETAMINOPHEN
     Indication: Pain
     Dosage: 1 DF, AS NEEDED
     Route: 048

REACTIONS (4)
  - Palpitations [Recovered/Resolved]
  - Dysgeusia [Recovered/Resolved]
  - Nausea [Recovered/Resolved]
  - Vomiting [Recovered/Resolved]

NARRATIVE: CASE EVENT DATE: 20240202
